FAERS Safety Report 21182754 (Version 1)
Quarter: 2022Q3

REPORT INFORMATION
  Report Type: Spontaneous
  Country: US (occurrence: US)
  Receive Date: 20220808
  Receipt Date: 20220808
  Transmission Date: 20221026
  Serious: No
  Sender: FDA-Public Use
  Company Number: US-Ipsen Biopharmaceuticals, Inc.-2022-21737

PATIENT
  Age: 22 Year
  Sex: Female

DRUGS (2)
  1. DYSPORT [Suspect]
     Active Substance: ABOBOTULINUMTOXINA
     Indication: Skin wrinkling
     Dosage: 6 UNITS
     Route: 065
     Dates: start: 20220720, end: 20220720
  2. DYSPORT [Suspect]
     Active Substance: ABOBOTULINUMTOXINA
     Indication: Off label use

REACTIONS (11)
  - Asthenia [Not Recovered/Not Resolved]
  - Vomiting [Unknown]
  - Diarrhoea [Unknown]
  - Nausea [Unknown]
  - Dizziness [Unknown]
  - Chest pain [Unknown]
  - Heart rate irregular [Unknown]
  - Pyrexia [Unknown]
  - Extrasystoles [Unknown]
  - Nodal rhythm [Unknown]
  - Off label use [Unknown]

NARRATIVE: CASE EVENT DATE: 20220701
